FAERS Safety Report 5843151-7 (Version None)
Quarter: 2008Q3

REPORT INFORMATION
  Report Type: 
  Country: None (occurrence: None)
  Receive Date: 20080813
  Receipt Date: 20080804
  Transmission Date: 20090109
  Serious: Yes (Hospitalization)
  Sender: FDA-Public Use
  Company Number: DE-AMGEN-UK292159

PATIENT

DRUGS (8)
  1. ARANESP [Suspect]
     Indication: ANAEMIA OF MALIGNANT DISEASE
     Route: 058
     Dates: start: 20061030, end: 20070227
  2. TAXOTERE [Concomitant]
     Route: 042
     Dates: start: 20061030, end: 20070123
  3. ADRIAMYCIN PFS [Concomitant]
     Route: 042
     Dates: start: 20061030, end: 20070123
  4. CYCLOPHOSPHAMIDE [Concomitant]
     Route: 042
     Dates: start: 20061030, end: 20070123
  5. RAMIPRIL [Concomitant]
  6. MOXONIDINE [Concomitant]
  7. METOPROLOL SUCCINATE [Concomitant]
  8. LEVOTHYROXINE SODIUM [Concomitant]

REACTIONS (4)
  - DYSPNOEA [None]
  - GENERAL PHYSICAL HEALTH DETERIORATION [None]
  - INFECTION [None]
  - PULMONARY EMBOLISM [None]
